FAERS Safety Report 24544167 (Version 1)
Quarter: 2024Q4

REPORT INFORMATION
  Report Type: Spontaneous
  Country: US (occurrence: US)
  Receive Date: 20241024
  Receipt Date: 20241024
  Transmission Date: 20250115
  Serious: Yes (Other)
  Sender: MYLAN
  Company Number: US-MYLANLABS-2024M1095769

PATIENT
  Age: 64 Year
  Sex: Female

DRUGS (3)
  1. METHYLPREDNISOLONE [Suspect]
     Active Substance: METHYLPREDNISOLONE
     Indication: Neurosarcoidosis
     Dosage: UNK
     Route: 065
  2. PREDNISONE [Suspect]
     Active Substance: PREDNISONE
     Indication: Neurosarcoidosis
     Dosage: UNK
     Route: 048
  3. METHOTREXATE [Concomitant]
     Active Substance: METHOTREXATE
     Indication: Neurosarcoidosis
     Dosage: UNK, LOW DOSE
     Route: 065

REACTIONS (5)
  - Neurosarcoidosis [Recovered/Resolved]
  - Rebound effect [Recovered/Resolved]
  - Gastrooesophageal reflux disease [Unknown]
  - Tremor [Unknown]
  - Blood glucose abnormal [Unknown]
